FAERS Safety Report 6169217-2 (Version None)
Quarter: 2009Q2

REPORT INFORMATION
  Report Type: 
  Country: None (occurrence: None)
  Receive Date: 20090427
  Receipt Date: 20090415
  Transmission Date: 20091009
  Serious: Yes (Other)
  Sender: FDA-Public Use
  Company Number: CA-WYE-H08974509

PATIENT
  Age: 26 Year
  Sex: Male

DRUGS (1)
  1. DRISTAN LONG-LASTING MENTHOLATED [Suspect]
     Indication: SINUS DISORDER
     Dosage: UNKNOWN DOSE AS NEEDED
     Route: 045
     Dates: start: 20040101

REACTIONS (1)
  - DRUG DEPENDENCE [None]
